FAERS Safety Report 8960113 (Version 1)
Quarter: 2012Q4

REPORT INFORMATION
  Report Type: 
  Country: FR (occurrence: FR)
  Receive Date: 20121211
  Receipt Date: 20121211
  Transmission Date: 20130627
  Serious: Yes (Other)
  Sender: FDA-Public Use
  Company Number: FR-GLAXOSMITHKLINE-B0849491A

PATIENT
  Age: 40 Year
  Sex: Female

DRUGS (5)
  1. ZELITREX [Suspect]
     Indication: ANTIVIRAL PROPHYLAXIS
     Route: 048
     Dates: end: 201211
  2. ZOVIRAX [Suspect]
     Indication: ANTIVIRAL PROPHYLAXIS
     Route: 048
  3. FLECAINE [Concomitant]
     Indication: EXTRASYSTOLES
     Route: 048
  4. CARDENSIEL [Concomitant]
     Indication: EXTRASYSTOLES
     Route: 048
  5. XANAX [Concomitant]
     Route: 048

REACTIONS (3)
  - Fatigue [Not Recovered/Not Resolved]
  - Headache [Not Recovered/Not Resolved]
  - Drug administration error [Unknown]
